FAERS Safety Report 23828502 (Version 1)
Quarter: 2024Q2

REPORT INFORMATION
  Report Type: Spontaneous
  Country: US (occurrence: US)
  Receive Date: 20240508
  Receipt Date: 20240508
  Transmission Date: 20240715
  Serious: No
  Sender: FDA-Public Use
  Company Number: US-PADAGIS-2024PAD00711

PATIENT

DRUGS (2)
  1. CICLOPIROX [Suspect]
     Active Substance: CICLOPIROX\TOCOPHEROL
     Indication: Product used for unknown indication
     Dosage: UNK
     Route: 065
  2. CICLOPIROX [Suspect]
     Active Substance: CICLOPIROX\TOCOPHEROL
     Dosage: UNK
     Route: 065

REACTIONS (1)
  - Application site irritation [Unknown]
